FAERS Safety Report 13635661 (Version 3)
Quarter: 2018Q2

REPORT INFORMATION
  Report Type: Spontaneous
  Country: CN (occurrence: CN)
  Receive Date: 20170609
  Receipt Date: 20180423
  Transmission Date: 20180711
  Serious: Yes (Hospitalization, Other)
  Sender: FDA-Public Use
  Company Number: PHHY2016CN139886

PATIENT
  Sex: Female

DRUGS (1)
  1. SEBIVO [Suspect]
     Active Substance: TELBIVUDINE
     Indication: HEPATITIS B
     Dosage: 1 DF, QD
     Route: 048
     Dates: start: 201504

REACTIONS (6)
  - Dyspnoea [Recovering/Resolving]
  - Decreased immune responsiveness [Unknown]
  - Nephrolithiasis [Unknown]
  - Maternal exposure during pregnancy [Unknown]
  - Asthma [Unknown]
  - Postpartum disorder [Unknown]
